FAERS Safety Report 5921584-8 (Version None)
Quarter: 2008Q4

REPORT INFORMATION
  Report Type: 
  Country: None (occurrence: None)
  Receive Date: 20081017
  Receipt Date: 20081007
  Transmission Date: 20090506
  Serious: Yes (Other)
  Sender: FDA-Public Use
  Company Number: DE-BAYER-200828350GPV

PATIENT
  Age: 46 Year
  Sex: Female

DRUGS (5)
  1. NEXAVAR [Suspect]
     Indication: CHLOROMA
     Dosage: AS USED: 400 MG
     Route: 065
     Dates: start: 20070101
  2. NEXAVAR [Suspect]
     Dosage: TOTAL DAILY DOSE: 800 MG
     Route: 065
     Dates: start: 20070101
  3. MITOXANTRONE [Concomitant]
     Indication: ACUTE MYELOID LEUKAEMIA
     Route: 065
     Dates: start: 20040801, end: 20041001
  4. MITOXANTRONE [Concomitant]
     Route: 065
     Dates: start: 20041001, end: 20041201
  5. MITOXANTRONE [Concomitant]
     Route: 065
     Dates: start: 20050801, end: 20051001

REACTIONS (5)
  - ALANINE AMINOTRANSFERASE INCREASED [None]
  - ASPARTATE AMINOTRANSFERASE INCREASED [None]
  - GRAFT VERSUS HOST DISEASE [None]
  - TACHYCARDIA PAROXYSMAL [None]
  - THROMBOCYTOPENIA [None]
